FAERS Safety Report 18322157 (Version 1)
Quarter: 2020Q3

REPORT INFORMATION
  Report Type: Spontaneous
  Country: US (occurrence: US)
  Receive Date: 20200928
  Receipt Date: 20200928
  Transmission Date: 20201103
  Serious: No
  Sender: FDA-Public Use
  Company Number: None

PATIENT
  Age: 77 Year
  Sex: Male
  Weight: 865.47 kg

DRUGS (1)
  1. FORTEO [Suspect]
     Active Substance: TERIPARATIDE
     Indication: OSTEOPOROSIS
     Dosage: ?          OTHER STRENGTH:600MCG/2.4ML;OTHER DOSE:20MCG;?
     Route: 058
     Dates: start: 201908

REACTIONS (4)
  - Lack of spontaneous speech [None]
  - Sleep disorder [None]
  - Hydrocephalus [None]
  - Malaise [None]
